FAERS Safety Report 24280529 (Version 2)
Quarter: 2024Q3

REPORT INFORMATION
  Report Type: Spontaneous
  Country: CA (occurrence: CA)
  Receive Date: 20240904
  Receipt Date: 20240906
  Transmission Date: 20241017
  Serious: Yes (Other)
  Sender: CELLTRION
  Company Number: CA-PFIZER INC-202400245031

PATIENT

DRUGS (1)
  1. INFLECTRA [Suspect]
     Active Substance: INFLIXIMAB-DYYB
     Indication: Colitis ulcerative
     Dosage: 10 MG/KG, HOSPITAL START
     Route: 042
     Dates: start: 20240823, end: 20240823

REACTIONS (2)
  - Perforation [Unknown]
  - Off label use [Unknown]

NARRATIVE: CASE EVENT DATE: 20240801
